FAERS Safety Report 16176243 (Version 3)
Quarter: 2019Q2

REPORT INFORMATION
  Report Type: Spontaneous
  Country: US (occurrence: US)
  Receive Date: 20190409
  Receipt Date: 20190416
  Transmission Date: 20190711
  Serious: No
  Sender: FDA-Public Use
  Company Number: US-SA-2019SA095991

PATIENT
  Sex: Female

DRUGS (1)
  1. PRALUENT [Suspect]
     Active Substance: ALIROCUMAB
     Indication: HYPERCHOLESTEROLAEMIA
     Dosage: 75 MG, QOW

REACTIONS (3)
  - Injection site swelling [Recovered/Resolved]
  - Device use issue [Recovered/Resolved]
  - Lack of administration site rotation [Unknown]

NARRATIVE: CASE EVENT DATE: 20190402
